FAERS Safety Report 15683209 (Version 1)
Quarter: 2018Q4

REPORT INFORMATION
  Report Type: Spontaneous
  Country: ES (occurrence: ES)
  Receive Date: 20181204
  Receipt Date: 20181204
  Transmission Date: 20190205
  Serious: Yes (Other)
  Sender: FDA-Public Use
  Company Number: ES-ROCHE-2223310

PATIENT
  Sex: Female

DRUGS (1)
  1. XOLAIR [Suspect]
     Active Substance: OMALIZUMAB
     Indication: ASTHMA
     Dosage: MOST RECENT DOSE ON : 22/NOV/2018
     Route: 065

REACTIONS (2)
  - Condition aggravated [Unknown]
  - Inappropriate schedule of product administration [Unknown]
